FAERS Safety Report 10509570 (Version 3)
Quarter: 2015Q1

REPORT INFORMATION
  Report Type: Report from Study
  Country: JP (occurrence: JP)
  Receive Date: 20141010
  Receipt Date: 20150327
  Transmission Date: 20150720
  Serious: Yes (Other)
  Sender: FDA-Public Use
  Company Number: JP-AMGEN-JPNCT2013094481

PATIENT
  Age: 69 Year
  Sex: Male
  Weight: 62 kg

DRUGS (12)
  1. CRAVIT [Concomitant]
     Active Substance: LEVOFLOXACIN
     Indication: PROPHYLAXIS
     Dosage: UNK
     Route: 048
  2. REVOLADE [Concomitant]
     Active Substance: ELTROMBOPAG
     Indication: IMMUNE THROMBOCYTOPENIC PURPURA
     Dosage: 12.5 MG, UNK
     Route: 048
     Dates: start: 20130424, end: 20130918
  3. PURSENNIDE                         /00571901/ [Concomitant]
     Indication: PROPHYLAXIS
     Dosage: UNK
     Route: 048
  4. TAKEPRON [Concomitant]
     Active Substance: LANSOPRAZOLE
     Indication: PROPHYLAXIS
     Dosage: UNK
     Route: 048
  5. ROMIPLOSTIM - KHK [Suspect]
     Active Substance: ROMIPLOSTIM
     Indication: IMMUNE THROMBOCYTOPENIC PURPURA
     Dosage: 1 MUG/KG, QD
     Route: 058
     Dates: start: 20120711, end: 20130416
  6. ADALAT [Concomitant]
     Active Substance: NIFEDIPINE
     Indication: PROPHYLAXIS
     Dosage: UNK
     Route: 048
  7. PREDONINE [Concomitant]
     Active Substance: PREDNISOLONE\PREDNISOLONE ACETATE\PREDNISOLONE SODIUM SUCCINATE
     Indication: IMMUNE THROMBOCYTOPENIC PURPURA
     Dosage: 5 MG, UNK
     Route: 048
     Dates: start: 20120626, end: 20130820
  8. DECADRON                           /00016002/ [Concomitant]
     Active Substance: DEXAMETHASONE
     Indication: IMMUNE THROMBOCYTOPENIC PURPURA
     Dosage: 33 MG, UNK
     Route: 065
     Dates: start: 20120713, end: 20120716
  9. CARNACULIN                         /00088101/ [Concomitant]
     Indication: PROPHYLAXIS
     Dosage: UNK
     Route: 048
  10. ADALAT [Concomitant]
     Active Substance: NIFEDIPINE
     Indication: HYPERTENSION
  11. RECALBON                           /06391801/ [Concomitant]
     Active Substance: MINODRONIC ACID
     Indication: PROPHYLAXIS
     Dosage: UNK
     Route: 048
  12. CARNACULIN                         /00088101/ [Concomitant]
     Indication: HYPERTENSION

REACTIONS (5)
  - Diabetes mellitus [Recovered/Resolved]
  - Eosinophil count increased [Recovered/Resolved]
  - Neutrophil count increased [Recovered/Resolved]
  - Insomnia [Not Recovered/Not Resolved]
  - White blood cell count increased [Recovered/Resolved]

NARRATIVE: CASE EVENT DATE: 20120807
